FAERS Safety Report 22588815 (Version 1)
Quarter: 2023Q2

REPORT INFORMATION
  Report Type: Spontaneous
  Country: US (occurrence: None)
  Receive Date: 20230609
  Receipt Date: 20230609
  Transmission Date: 20230721
  Serious: Yes (Hospitalization)
  Sender: FDA-Public Use
  Company Number: None

PATIENT
  Sex: 0

DRUGS (1)
  1. OXBRYTA [Suspect]
     Active Substance: VOXELOTOR
     Indication: Sickle cell disease
     Dates: start: 20230510, end: 20230530

REACTIONS (3)
  - Deep vein thrombosis [None]
  - Seizure [None]
  - Vomiting [None]

NARRATIVE: CASE EVENT DATE: 20230530
